FAERS Safety Report 5354697-2 (Version None)
Quarter: 2007Q2

REPORT INFORMATION
  Report Type: 
  Country: None (occurrence: None)
  Receive Date: 20070612
  Receipt Date: 20070606
  Transmission Date: 20071010
  Serious: Yes (Other)
  Sender: FDA-Public Use
  Company Number: GB-ABBOTT-07P-167-0370739-00

PATIENT
  Age: 60 Year
  Weight: 90 kg

DRUGS (1)
  1. HUMIRA [Suspect]
     Indication: RHEUMATOID ARTHRITIS
     Dates: start: 20050101

REACTIONS (2)
  - ACTINIC KERATOSIS [None]
  - BASAL CELL CARCINOMA [None]
